FAERS Safety Report 16817804 (Version 1)
Quarter: 2019Q3

REPORT INFORMATION
  Report Type: Spontaneous
  Country: DE (occurrence: DE)
  Receive Date: 20190917
  Receipt Date: 20190917
  Transmission Date: 20191005
  Serious: Yes (Other)
  Sender: FDA-Public Use
  Company Number: DE-ELI_LILLY_AND_COMPANY-DE201909004254

PATIENT
  Age: 64 Year
  Sex: Female

DRUGS (2)
  1. FORSTEO [Suspect]
     Active Substance: TERIPARATIDE
     Indication: PRODUCT USED FOR UNKNOWN INDICATION
     Dosage: UNK UNK, UNKNOWN
     Route: 065
  2. FORSTEO [Suspect]
     Active Substance: TERIPARATIDE
     Dosage: UNK, OTHER (3/4 OF INJECTION)
     Route: 065

REACTIONS (6)
  - Arrhythmia [Recovering/Resolving]
  - Dizziness [Recovering/Resolving]
  - Hangover [Recovering/Resolving]
  - Nausea [Recovering/Resolving]
  - Underdose [Unknown]
  - Confusional state [Not Recovered/Not Resolved]
